FAERS Safety Report 15576389 (Version 1)
Quarter: 2018Q4

REPORT INFORMATION
  Report Type: Spontaneous
  Country: FR (occurrence: FR)
  Receive Date: 20181101
  Receipt Date: 20181101
  Transmission Date: 20190205
  Serious: Yes (Other)
  Sender: FDA-Public Use
  Company Number: FR-BAUSCH-BL-2018-029886

PATIENT
  Age: 64 Year
  Sex: Female

DRUGS (4)
  1. PAROXETINE. [Suspect]
     Active Substance: PAROXETINE
     Indication: DEPRESSION
     Route: 048
     Dates: start: 20180502, end: 201807
  2. ROSUVASTATINE [Suspect]
     Active Substance: ROSUVASTATIN
     Indication: DYSLIPIDAEMIA
     Route: 048
     Dates: end: 201806
  3. VENLAFAXINE [Suspect]
     Active Substance: VENLAFAXINE HYDROCHLORIDE
     Indication: DEPRESSION
     Route: 048
     Dates: end: 20180502
  4. LEVOTHYROX [Concomitant]
     Active Substance: LEVOTHYROXINE
     Indication: HYPOTHYROIDISM
     Route: 048

REACTIONS (1)
  - Colitis microscopic [Recovered/Resolved]

NARRATIVE: CASE EVENT DATE: 20180522
